FAERS Safety Report 16284059 (Version 3)
Quarter: 2019Q3

REPORT INFORMATION
  Report Type: Report from Study
  Country: CA (occurrence: CA)
  Receive Date: 20190507
  Receipt Date: 20190905
  Transmission Date: 20191004
  Serious: Yes (Hospitalization, Other)
  Sender: FDA-Public Use
  Company Number: PHHY2017CA136777

PATIENT
  Age: 83 Year
  Sex: Male

DRUGS (4)
  1. SANDOSTATIN LAR DEPOT [Suspect]
     Active Substance: OCTREOTIDE ACETATE
     Indication: ANGIODYSPLASIA
     Dosage: 10 MG, QMO
     Route: 030
     Dates: start: 20101221
  2. SANDOSTATIN [Suspect]
     Active Substance: OCTREOTIDE ACETATE
     Indication: ANGIODYSPLASIA
     Dosage: UNK
     Route: 058
     Dates: start: 201011
  3. MEPRON [Concomitant]
     Active Substance: ATOVAQUONE
     Indication: PRODUCT USED FOR UNKNOWN INDICATION
     Dosage: 150 MG/ML, QD
     Route: 065
  4. NASONEX [Concomitant]
     Active Substance: MOMETASONE FUROATE
     Indication: PRODUCT USED FOR UNKNOWN INDICATION
     Dosage: 50 UG, QD, FOR 2 MONTHS
     Route: 045

REACTIONS (10)
  - Prostatic specific antigen decreased [Unknown]
  - Lung neoplasm malignant [Unknown]
  - Rash [Unknown]
  - Dyspnoea [Unknown]
  - Viral infection [Unknown]
  - Bone cancer [Unknown]
  - Product use in unapproved indication [Unknown]
  - Bladder neoplasm [Unknown]
  - Herpes zoster [Unknown]
  - Inguinal hernia [Unknown]

NARRATIVE: CASE EVENT DATE: 2019
